FAERS Safety Report 4635642-1 (Version None)
Quarter: 2005Q2

REPORT INFORMATION
  Report Type: 
  Country: None (occurrence: None)
  Receive Date: 20050413
  Receipt Date: 20050330
  Transmission Date: 20051028
  Serious: Yes (Hospitalization)
  Sender: FDA-Public Use
  Company Number: 1515-090

PATIENT
  Age: 47 Year
  Sex: Female

DRUGS (2)
  1. VENOFER [Suspect]
     Indication: ANAEMIA
     Dosage: 100 MG IV
     Route: 042
     Dates: start: 20040524, end: 20040528
  2. LEVAXIN [Concomitant]

REACTIONS (1)
  - THROMBOSIS [None]
